FAERS Safety Report 23721646 (Version 1)
Quarter: 2024Q2

REPORT INFORMATION
  Report Type: Report from Study
  Country: US (occurrence: US)
  Receive Date: 20240409
  Receipt Date: 20240409
  Transmission Date: 20240716
  Serious: Yes (Other)
  Sender: FDA-Public Use
  Company Number: US-BIOVITRUM-2024-US-005272

PATIENT
  Age: 20 Year
  Sex: Female

DRUGS (2)
  1. KINERET [Suspect]
     Active Substance: ANAKINRA
     Indication: Cryopyrin associated periodic syndrome
     Dosage: DAILY
     Route: 058
  2. ILARIS [Suspect]
     Active Substance: CANAKINUMAB
     Indication: Product used for unknown indication

REACTIONS (4)
  - Epilepsy [Unknown]
  - Cryopyrin associated periodic syndrome [Unknown]
  - Off label use [Not Recovered/Not Resolved]
  - Condition aggravated [Unknown]
